FAERS Safety Report 4471762-2 (Version None)
Quarter: 2004Q4

REPORT INFORMATION
  Report Type: 
  Country: None (occurrence: None)
  Receive Date: 20041007
  Receipt Date: 20040924
  Transmission Date: 20050328
  Serious: Yes (Death, Other)
  Sender: FDA-Public Use
  Company Number: 2004236227DE

PATIENT
  Age: 12 Year
  Sex: Female

DRUGS (4)
  1. IDARUBICIN HCL [Suspect]
     Indication: ACUTE MYELOID LEUKAEMIA
     Dosage: 14 MG/M2, CYCLIC, DAYS 3, 4,5, IV DRIP
     Route: 041
  2. CYTARABINE [Suspect]
     Indication: ACUTE MYELOID LEUKAEMIA
     Dosage: 100 MG/M2,CYCLIC, 2-D INFUSION,IV DRIP : 100 MG/M2,CYCLIC DAYS 3,8,IV DRIP : HIGH-DOSE,CONSOLIDATION
     Route: 041
  3. ETOPOSIDE [Suspect]
     Indication: ACUTE MYELOID LEUKAEMIA
     Dosage: 150 MG/M2 ,CYCLIC, DAYS 6,7,8 , IV DRIP
     Route: 041
  4. MITOXANTRONE [Suspect]
     Indication: ACUTE MYELOID LEUKAEMIA

REACTIONS (6)
  - APLASIA [None]
  - ASPERGILLOSIS [None]
  - DRUG TOXICITY [None]
  - INTESTINAL HAEMORRHAGE [None]
  - NEUROTOXICITY [None]
  - SEPSIS [None]
